FAERS Safety Report 9265399 (Version 1)
Quarter: 2013Q2

REPORT INFORMATION
  Report Type: Spontaneous
  Country: US (occurrence: US)
  Receive Date: 20130501
  Receipt Date: 20130501
  Transmission Date: 20140414
  Serious: Yes (Hospitalization, Other)
  Sender: FDA-Public Use
  Company Number: US-ASTRAZENECA-2013SE24951

PATIENT
  Age: 2 Month
  Sex: Male
  Weight: 5.4 kg

DRUGS (9)
  1. SYNAGIS [Suspect]
     Indication: HEART DISEASE CONGENITAL
     Dosage: 15 MG/KG - 71 MG
     Route: 030
     Dates: start: 20130114, end: 20130114
  2. KCL [Concomitant]
     Indication: HYPOKALAEMIA
     Route: 048
     Dates: start: 20130201
  3. KCL [Concomitant]
     Indication: HYPOKALAEMIA
     Route: 048
  4. ASPIRIN [Concomitant]
     Indication: CARDIOMEGALY
     Route: 048
     Dates: start: 20121204
  5. CAPTOPRIL [Concomitant]
     Indication: CARDIOMEGALY
     Route: 048
     Dates: start: 20121204
  6. CARVEDILOL [Concomitant]
     Indication: CARDIOMEGALY
     Route: 048
     Dates: start: 20121204
  7. DIGOXIN [Concomitant]
     Indication: CARDIOMEGALY
     Route: 048
     Dates: start: 20121204
  8. FUROSEMIDE [Concomitant]
     Dates: start: 20121204
  9. MYOZYME [Concomitant]
     Indication: GLYCOGEN STORAGE DISEASE TYPE II
     Route: 042
     Dates: start: 20130301

REACTIONS (3)
  - Aspiration [Unknown]
  - Alkalosis hypochloraemic [Unknown]
  - Respiratory syncytial virus bronchiolitis [Recovered/Resolved with Sequelae]
